FAERS Safety Report 5909057-X (Version None)
Quarter: 2008Q4

REPORT INFORMATION
  Report Type: 
  Country: None (occurrence: None)
  Receive Date: 20081006
  Receipt Date: 20080929
  Transmission Date: 20090506
  Serious: Yes (Hospitalization)
  Sender: FDA-Public Use
  Company Number: AT-BRISTOL-MYERS SQUIBB COMPANY-14358725

PATIENT
  Age: 56 Year
  Sex: Male
  Weight: 69 kg

DRUGS (3)
  1. CETUXIMAB [Suspect]
     Indication: NON-SMALL CELL LUNG CANCER
     Dosage: 5MG/ML; THERAPY INITIATED ON AN UNKNOWN DATE.
     Route: 042
     Dates: start: 20080924, end: 20080924
  2. CISPLATIN [Suspect]
     Indication: NON-SMALL CELL LUNG CANCER
     Dosage: THERAPY START DATE NOT REPORTED
     Route: 042
     Dates: start: 20080911, end: 20080911
  3. DOCETAXEL [Suspect]
     Indication: NON-SMALL CELL LUNG CANCER
     Dosage: THERAPY START DATE NOT REPORTED
     Route: 042
     Dates: start: 20080910, end: 20080910

REACTIONS (3)
  - ARTHRALGIA [None]
  - DIARRHOEA [None]
  - PYREXIA [None]
